FAERS Safety Report 9155782 (Version 1)
Quarter: 2013Q1

REPORT INFORMATION
  Report Type: Spontaneous
  Country: IE (occurrence: IE)
  Receive Date: 20130311
  Receipt Date: 20130311
  Transmission Date: 20140127
  Serious: Yes (Hospitalization)
  Sender: FDA-Public Use
  Company Number: IE-ASTRAZENECA-2013SE15589

PATIENT
  Sex: Female

DRUGS (4)
  1. SYNAGIS [Suspect]
     Route: 030
     Dates: start: 20121106
  2. FERINSOL [Concomitant]
  3. ABIDEC [Concomitant]
  4. ZANTAC [Concomitant]

REACTIONS (2)
  - Feeding disorder of infancy or early childhood [Unknown]
  - Failure to thrive [Unknown]
